FAERS Safety Report 5394505-7 (Version None)
Quarter: 2007Q3

REPORT INFORMATION
  Report Type: 
  Country: None (occurrence: None)
  Receive Date: 20070723
  Receipt Date: 20070712
  Transmission Date: 20080115
  Serious: Yes (Hospitalization)
  Sender: FDA-Public Use
  Company Number: JP-ASTRAZENECA-2007AP03784

PATIENT
  Age: 68 Year
  Sex: Female
  Weight: 64 kg

DRUGS (20)
  1. PULMICORT [Suspect]
     Indication: ASTHMA
     Route: 055
     Dates: start: 20070530, end: 20070613
  2. FERON [Suspect]
     Indication: HEPATITIS C
     Dosage: 300 X 104 U/WEEK
     Route: 041
     Dates: start: 20061005, end: 20061122
  3. FERON [Suspect]
     Indication: HEPATIC CIRRHOSIS
     Dosage: 300 X 104 U/WEEK
     Route: 041
     Dates: start: 20061005, end: 20061122
  4. FERON [Suspect]
     Dosage: 300 X 104 U/WEEK
     Route: 041
     Dates: start: 20070305, end: 20070530
  5. FERON [Suspect]
     Dosage: 300 X 104 U/WEEK
     Route: 041
     Dates: start: 20070305, end: 20070530
  6. FERON [Suspect]
     Dosage: 300 X 104 U/WEEK
     Route: 041
     Dates: start: 20070613, end: 20070613
  7. FERON [Suspect]
     Dosage: 300 X 104 U/WEEK
     Route: 041
     Dates: start: 20070613, end: 20070613
  8. ONON [Concomitant]
     Indication: ASTHMA
     Route: 048
     Dates: start: 20070317, end: 20070613
  9. CODEINE PHOSPHATE [Concomitant]
     Indication: COUGH
     Route: 048
     Dates: start: 20070317
  10. AMINOLEBAN [Concomitant]
     Indication: HEPATIC CIRRHOSIS
     Route: 041
  11. AMINOLEBAN [Concomitant]
     Indication: HEPATITIS C
     Route: 041
  12. AMINOLEBAN [Concomitant]
     Indication: HEPATIC FAILURE
     Route: 041
  13. LASIX [Concomitant]
     Indication: HEPATITIS C
     Route: 048
  14. LASIX [Concomitant]
     Indication: HEPATIC CIRRHOSIS
     Route: 048
  15. FAMOTIDINE [Concomitant]
     Route: 048
  16. LOXONIN [Concomitant]
     Route: 048
  17. CANDESARTAN CILEXETIL [Concomitant]
     Route: 048
  18. MAGNESIUM OXIDE [Concomitant]
     Route: 048
     Dates: start: 20070317
  19. URSO 250 [Concomitant]
     Indication: HEPATITIS C
     Route: 048
  20. URSO 250 [Concomitant]
     Indication: HEPATIC CIRRHOSIS
     Route: 048

REACTIONS (3)
  - COLD SWEAT [None]
  - MALAISE [None]
  - PYREXIA [None]
